FAERS Safety Report 12594161 (Version 1)
Quarter: 2016Q3

REPORT INFORMATION
  Report Type: Spontaneous
  Country: US (occurrence: US)
  Receive Date: 20160726
  Receipt Date: 20160726
  Transmission Date: 20161109
  Serious: Yes (Hospitalization)
  Sender: FDA-Public Use
  Company Number: US-UNITED THERAPEUTICS-UNT-2015-015739

PATIENT
  Age: 28 Year
  Sex: Female
  Weight: 69.39 kg

DRUGS (6)
  1. XARELTO [Suspect]
     Active Substance: RIVAROXABAN
     Indication: PRODUCT USED FOR UNKNOWN INDICATION
     Dosage: UNK
  2. REMODULIN [Suspect]
     Active Substance: TREPROSTINIL
     Indication: PULMONARY ARTERIAL HYPERTENSION
     Dosage: 0.151 ?G/KG, CONTINUING
     Route: 041
     Dates: start: 20150330
  3. ADEMPAS [Suspect]
     Active Substance: RIOCIGUAT
     Indication: PRODUCT USED FOR UNKNOWN INDICATION
     Dosage: UNK
  4. OPSUMIT [Concomitant]
     Active Substance: MACITENTAN
     Indication: PRODUCT USED FOR UNKNOWN INDICATION
     Dosage: UNK
  5. ADCIRCA [Concomitant]
     Active Substance: TADALAFIL
     Indication: PRODUCT USED FOR UNKNOWN INDICATION
  6. REMODULIN [Suspect]
     Active Substance: TREPROSTINIL
     Dosage: 0.164 ?G/KG, CONTINUING
     Route: 041

REACTIONS (15)
  - Pulmonary arterial hypertension [Unknown]
  - Hypotension [Unknown]
  - Fluid retention [Unknown]
  - Device issue [Unknown]
  - Presyncope [Unknown]
  - Syncope [Unknown]
  - Drug dose omission [Unknown]
  - Nausea [Unknown]
  - Dyspnoea [Unknown]
  - Decreased appetite [Unknown]
  - Dizziness [Unknown]
  - Cardiac failure [Unknown]
  - Palpitations [Unknown]
  - Chest pain [Unknown]
  - Dyspnoea exertional [Unknown]

NARRATIVE: CASE EVENT DATE: 201512
